FAERS Safety Report 16850058 (Version 1)
Quarter: 2019Q3

REPORT INFORMATION
  Report Type: Report from Study
  Country: US (occurrence: US)
  Receive Date: 20190925
  Receipt Date: 20190925
  Transmission Date: 20191005
  Serious: Yes (Hospitalization)
  Sender: FDA-Public Use
  Company Number: US-JNJFOC-20190824977

PATIENT
  Age: 81 Year
  Sex: Male

DRUGS (15)
  1. LASIX [Concomitant]
     Active Substance: FUROSEMIDE
  2. NITROSTAT [Concomitant]
     Active Substance: NITROGLYCERIN
  3. ALLOPURINOL. [Concomitant]
     Active Substance: ALLOPURINOL
  4. CICLOPIROX. [Concomitant]
     Active Substance: CICLOPIROX
  5. CARVEDILOL. [Concomitant]
     Active Substance: CARVEDILOL
  6. NOVOLOG [Concomitant]
     Active Substance: INSULIN ASPART
  7. ASPIRIN. [Concomitant]
     Active Substance: ASPIRIN
     Dosage: QC ASPIRIN LOW DOSE
  8. IMBRUVICA [Suspect]
     Active Substance: IBRUTINIB
     Indication: CHRONIC LYMPHOCYTIC LEUKAEMIA
     Dosage: 420 MG, QD
     Route: 048
     Dates: start: 201803
  9. LISINOPRIL. [Concomitant]
     Active Substance: LISINOPRIL
  10. ISOSORBIDE DINITRATE. [Concomitant]
     Active Substance: ISOSORBIDE DINITRATE
  11. FLOMAX [Concomitant]
     Active Substance: TAMSULOSIN HYDROCHLORIDE
  12. IMBRUVICA [Suspect]
     Active Substance: IBRUTINIB
     Dosage: 420 MG, QD
     Route: 048
     Dates: start: 20190815
  13. PRAVASTATIN SODIUM. [Concomitant]
     Active Substance: PRAVASTATIN SODIUM
  14. FLUOCINONIDE. [Concomitant]
     Active Substance: FLUOCINONIDE
  15. MECLIZINE HCL [Concomitant]
     Active Substance: MECLIZINE HYDROCHLORIDE

REACTIONS (6)
  - Hypertension [Unknown]
  - Hyperlipidaemia [Unknown]
  - Pneumonia [Recovered/Resolved]
  - Cardiac failure [Unknown]
  - Lung infiltration [Recovered/Resolved]
  - Chest pain [Recovered/Resolved]

NARRATIVE: CASE EVENT DATE: 20190811
